FAERS Safety Report 4983760-0 (Version None)
Quarter: 2006Q1

REPORT INFORMATION
  Report Type: 
  Country: None (occurrence: None)
  Receive Date: 20060302
  Receipt Date: 20051118
  Transmission Date: 20060701
  Serious: Yes (Hospitalization)
  Sender: FDA-Public Use
  Company Number: 219699

PATIENT
  Age: 8 Year
  Sex: Male

DRUGS (1)
  1. NUTROPIN AQ [Suspect]
     Indication: RENAL DISORDER
     Dosage: 0.26, QD
     Dates: start: 20050912

REACTIONS (1)
  - INTRACRANIAL PRESSURE INCREASED [None]
